FAERS Safety Report 23196787 (Version 2)
Quarter: 2023Q4

REPORT INFORMATION
  Report Type: Spontaneous
  Country: JP (occurrence: None)
  Receive Date: 20231117
  Receipt Date: 20231122
  Transmission Date: 20240109
  Serious: Yes (Death)
  Sender: FDA-Public Use
  Company Number: 2023A257474

PATIENT
  Age: 95 Year
  Sex: Male

DRUGS (15)
  1. DAPAGLIFLOZIN [Suspect]
     Active Substance: DAPAGLIFLOZIN
     Indication: Cardiac failure chronic
     Dosage: DOSE UNKNOWN
     Route: 048
  2. EDOXABAN TOSYLATE [Concomitant]
     Active Substance: EDOXABAN TOSYLATE
     Dosage: NUMBER OF SEPARATE DOSAGES UNKNOWN
     Route: 048
  3. ENALAPRIL MALEATE [Concomitant]
     Active Substance: ENALAPRIL MALEATE
     Dosage: NUMBER OF SEPARATE DOSAGES UNKNOWN
     Route: 048
  4. BISOPROLOL FUMARATE [Concomitant]
     Active Substance: BISOPROLOL FUMARATE
     Dosage: NUMBER OF SEPARATE DOSAGES UNKNOWN
     Route: 048
  5. VONOPRAZAN FUMARATE [Concomitant]
     Active Substance: VONOPRAZAN FUMARATE
     Dosage: NUMBER OF SEPARATE DOSAGES UNKNOWN
     Route: 048
  6. SPIRONOLACTONE [Concomitant]
     Active Substance: SPIRONOLACTONE
     Dosage: NUMBER OF SEPARATE DOSAGES UNKNOWN
     Route: 048
  7. LEVOTHYROXINE SODIUM [Concomitant]
     Active Substance: LEVOTHYROXINE SODIUM
     Dosage: NUMBER OF SEPARATE DOSAGES UNKNOWN
     Route: 048
  8. DOBUTAMINE [Concomitant]
     Active Substance: DOBUTAMINE HYDROCHLORIDE
     Indication: Cardiac failure chronic
     Dosage: DOSE UNKNOWN
     Route: 041
  9. FUROSEMIDE [Concomitant]
     Active Substance: FUROSEMIDE
     Indication: Cardiac failure chronic
     Dosage: DOSE UNKNOWN
     Route: 041
  10. CARPERITIDE [Concomitant]
     Active Substance: CARPERITIDE
     Indication: Cardiac failure chronic
     Dosage: DOSE UNKNOWN
     Route: 041
  11. AZOSEMIDE [Concomitant]
     Active Substance: AZOSEMIDE
     Indication: Cardiac failure chronic
     Dosage: DOSE UNKNOWN
     Route: 048
  12. TOLVAPTAN [Concomitant]
     Active Substance: TOLVAPTAN
     Indication: Cardiac failure chronic
     Dosage: DOSE UNKNOWN
     Route: 048
  13. HALOPERIDOL [Concomitant]
     Active Substance: HALOPERIDOL
     Dosage: DOSE UNKNOWN
     Route: 042
  14. MIDAZOLAM [Concomitant]
     Active Substance: MIDAZOLAM
     Dosage: DOSE UNKNOWN
     Route: 042
  15. MORPHINE HYDROCHLORIDE [Concomitant]
     Active Substance: MORPHINE HYDROCHLORIDE
     Dosage: DOSE UNKNOWN
     Route: 042

REACTIONS (1)
  - Death [Fatal]
